FAERS Safety Report 6013115-1 (Version None)
Quarter: 2008Q4

REPORT INFORMATION
  Report Type: 
  Country: None (occurrence: None)
  Receive Date: 20081219
  Receipt Date: 20081210
  Transmission Date: 20090506
  Serious: Yes (Hospitalization)
  Sender: FDA-Public Use
  Company Number: BR-BIOGENIDEC-2008BI033548

PATIENT
  Age: 44 Year
  Sex: Female

DRUGS (4)
  1. AVONEX [Suspect]
     Indication: MULTIPLE SCLEROSIS
     Route: 030
     Dates: start: 20061201
  2. CITALOPRAM [Concomitant]
     Indication: ANXIETY
     Dates: start: 20021201
  3. DEPAKOTE [Concomitant]
     Indication: ANXIETY
     Dates: start: 20021201
  4. UNSPECIFIED MEDICINE [Concomitant]
     Indication: BLOOD CHOLESTEROL
     Dates: start: 20021201

REACTIONS (5)
  - BALANCE DISORDER [None]
  - GAIT DISTURBANCE [None]
  - MEMORY IMPAIRMENT [None]
  - MOBILITY DECREASED [None]
  - NUCLEAR MAGNETIC RESONANCE IMAGING BRAIN ABNORMAL [None]
